FAERS Safety Report 7958834-2 (Version None)
Quarter: 2011Q4

REPORT INFORMATION
  Report Type: 
  Country: None (occurrence: None)
  Receive Date: 20111206
  Receipt Date: 20111128
  Transmission Date: 20120403
  Serious: Yes (Other)
  Sender: FDA-Public Use
  Company Number: PL-UCBSA-030232

PATIENT
  Age: 25 Year
  Sex: Female
  Weight: 50 kg

DRUGS (3)
  1. FOLIC ACID [Concomitant]
     Route: 048
     Dates: start: 20101201
  2. KEPPRA [Suspect]
     Indication: GRAND MAL CONVULSION
     Dosage: 2 X 1000 MG/24 HOURS
     Route: 048
     Dates: start: 20100701
  3. FOLIC ACID [Concomitant]
     Indication: PREGNANCY
     Route: 048
     Dates: start: 20100701

REACTIONS (2)
  - CAESAREAN SECTION [None]
  - PREGNANCY [None]
